FAERS Safety Report 10003656 (Version 1)
Quarter: 2014Q1

REPORT INFORMATION
  Report Type: Spontaneous
  Country: US (occurrence: US)
  Receive Date: 20140312
  Receipt Date: 20140312
  Transmission Date: 20141002
  Serious: No
  Sender: FDA-Public Use
  Company Number: US-INCYTE CORPORATION-2013IN002892

PATIENT
  Sex: Female
  Weight: 54 kg

DRUGS (2)
  1. JAKAFI [Suspect]
     Indication: PULMONARY ARTERIAL HYPERTENSION
     Dosage: 20 MG, BID
     Route: 048
     Dates: start: 201202
  2. SILDENAFIL CITRATE [Concomitant]

REACTIONS (2)
  - Somnolence [Unknown]
  - Drug dose omission [Unknown]
